FAERS Safety Report 13377886 (Version 1)
Quarter: 2017Q1

REPORT INFORMATION
  Report Type: Report from Study
  Country: US (occurrence: US)
  Receive Date: 20170328
  Receipt Date: 20170328
  Transmission Date: 20170429
  Serious: Yes (Other)
  Sender: FDA-Public Use
  Company Number: US-GILEAD-2017-0259913

PATIENT
  Age: 63 Year
  Sex: Male
  Weight: 63.49 kg

DRUGS (10)
  1. LEDIPASVIR/SOFOSBUVIR [Suspect]
     Active Substance: LEDIPASVIR\SOFOSBUVIR
     Indication: CHRONIC HEPATITIS C
     Dosage: 1 DF, QD
     Route: 048
     Dates: start: 20160307, end: 20160502
  2. CLONAZEPAM. [Concomitant]
     Active Substance: CLONAZEPAM
  3. LISINOPRIL. [Concomitant]
     Active Substance: LISINOPRIL
  4. OLANZAPINE. [Concomitant]
     Active Substance: OLANZAPINE
  5. TRAMADOL. [Concomitant]
     Active Substance: TRAMADOL
  6. AMLODIPINE [Concomitant]
     Active Substance: AMLODIPINE BESYLATE
  7. GABAPENTIN. [Concomitant]
     Active Substance: GABAPENTIN
  8. DEXILANT [Concomitant]
     Active Substance: DEXLANSOPRAZOLE
     Dosage: 30 MG, QD
     Route: 048
  9. MIRTAZAPINE. [Concomitant]
     Active Substance: MIRTAZAPINE
  10. DEXILANT [Concomitant]
     Active Substance: DEXLANSOPRAZOLE
     Dosage: 60 MG, QD
     Route: 048

REACTIONS (3)
  - Drug ineffective [Not Recovered/Not Resolved]
  - Treatment failure [Not Recovered/Not Resolved]
  - Non-small cell lung cancer [Unknown]

NARRATIVE: CASE EVENT DATE: 20160818
